FAERS Safety Report 8579066-3 (Version None)
Quarter: 2012Q3

REPORT INFORMATION
  Report Type: 
  Country: None (occurrence: None)
  Receive Date: 20120808
  Receipt Date: 20120803
  Transmission Date: 20120928
  Serious: Yes (Death)
  Sender: FDA-Public Use
  Company Number: CO-ROCHE-1093159

PATIENT
  Sex: Male

DRUGS (1)
  1. AVASTIN [Suspect]
     Indication: COLON CANCER
     Route: 042
     Dates: start: 20110831, end: 20111219

REACTIONS (3)
  - ANAEMIA [None]
  - PYELONEPHRITIS [None]
  - HAEMATURIA [None]
